FAERS Safety Report 5480794-7 (Version None)
Quarter: 2007Q4

REPORT INFORMATION
  Report Type: 
  Country: None (occurrence: None)
  Receive Date: 20071009
  Receipt Date: 20071005
  Transmission Date: 20080405
  Serious: Yes (Other)
  Sender: FDA-Public Use
  Company Number: FR-ROXANE LABORATORIES, INC-2007-DE-05938GD

PATIENT

DRUGS (3)
  1. MORPHINE [Suspect]
     Indication: POSTOPERATIVE ANALGESIA
     Dosage: TITRATION UNTIL A VISUAL ANALOG SCALE (VAS) SCORE OF 30/100 WAS OBTAINED
     Route: 042
  2. MORPHINE [Suspect]
     Dosage: BOLUS DOSES OF 0.015 ML/KG (1 MG/ML) EVERY 10 MINUTES WITHOUT ANY LIMITATION
     Route: 042
  3. PARACETAMOL [Concomitant]
     Route: 042

REACTIONS (1)
  - PNEUMONIA [None]
